FAERS Safety Report 8808982 (Version 1)
Quarter: 2012Q4

REPORT INFORMATION
  Report Type: Spontaneous
  Country: GB (occurrence: None)
  Receive Date: 20120920
  Receipt Date: 20120920
  Transmission Date: 20130627
  Serious: Yes (Life-Threatening, Hospitalization)
  Sender: FDA-Public Use
  Company Number: GB-DEXPHARM-20121243

PATIENT
  Age: 73 Year

DRUGS (1)
  1. CHLORHEXIDINE [Suspect]

REACTIONS (3)
  - Dermatitis allergic [None]
  - Anaphylactic shock [None]
  - Application site reaction [None]
